FAERS Safety Report 7546155-1 (Version None)
Quarter: 2011Q2

REPORT INFORMATION
  Report Type: 
  Country: None (occurrence: None)
  Receive Date: 20110614
  Receipt Date: 20020610
  Transmission Date: 20111010
  Serious: Yes (Death)
  Sender: FDA-Public Use
  Company Number: PHEH2002US05376

PATIENT
  Sex: Male

DRUGS (6)
  1. ZOLOFT [Concomitant]
  2. EXELON [Suspect]
     Indication: DEMENTIA ALZHEIMER'S TYPE
     Dosage: 6 MG, BID
     Dates: start: 20001107, end: 20020326
  3. PLAVIX [Concomitant]
  4. MICRONASE [Concomitant]
  5. VITAMIN TAB [Concomitant]
  6. MOEXIPRIL HYDROCHLORIDE [Concomitant]

REACTIONS (4)
  - MYOCARDIAL INFARCTION [None]
  - DECREASED APPETITE [None]
  - WEIGHT DECREASED [None]
  - DYSPHAGIA [None]
